FAERS Safety Report 8885578 (Version 1)
Quarter: 2012Q4

REPORT INFORMATION
  Report Type: 
  Country: US (occurrence: US)
  Receive Date: 20121101
  Receipt Date: 20121101
  Transmission Date: 20130627
  Serious: No
  Sender: FDA-Public Use
  Company Number: US-PFIZER INC-2012267658

PATIENT
  Age: 81 Year
  Sex: Female
  Weight: 47.17 kg

DRUGS (7)
  1. LEVOXYL [Suspect]
     Indication: HYPOTHYROIDISM
     Dosage: 25 mcg into half daily
     Route: 048
     Dates: start: 20101007, end: 20110802
  2. LEVOXYL [Suspect]
     Dosage: 25 mcg into half daily
     Route: 048
  3. SYNTHROID [Suspect]
     Indication: HYPOTHYROIDISM
     Dosage: 50 mcg tablet into half
     Route: 048
     Dates: start: 20060516
  4. SYNTHROID [Suspect]
     Dosage: 50 ug, UNK
     Route: 048
  5. VITAMIN B12 [Concomitant]
     Indication: CROHN^S DISEASE
     Dosage: UNK, monthly
  6. CALCIUM + VITAMIN D [Concomitant]
     Dosage: UNK, 2x/day
  7. VITAMIN D3 [Concomitant]
     Dosage: 1000 IU, daily

REACTIONS (4)
  - Food interaction [Unknown]
  - Nausea [Recovered/Resolved]
  - Thyroid disorder [Unknown]
  - Drug intolerance [Unknown]
